FAERS Safety Report 5881415-1 (Version None)
Quarter: 2008Q3

REPORT INFORMATION
  Report Type: 
  Country: None (occurrence: None)
  Receive Date: 20080912
  Receipt Date: 20080721
  Transmission Date: 20090109
  Serious: No
  Sender: FDA-Public Use
  Company Number: US-ABBOTT-08P-163-0460374-00

PATIENT
  Sex: Female
  Weight: 48.124 kg

DRUGS (4)
  1. HUMIRA [Suspect]
     Indication: RHEUMATOID ARTHRITIS
     Dates: start: 20070901
  2. HUMIRA [Suspect]
     Dates: start: 20080513
  3. METHOTREXATE [Concomitant]
     Indication: DRUG USE FOR UNKNOWN INDICATION
     Dosage: 6 TABLETS WEEKLY
     Route: 048
  4. METHOTREXATE [Concomitant]
     Dosage: 8 TABLETS WEEKLY
     Route: 048

REACTIONS (4)
  - ARTHRALGIA [None]
  - DRUG INEFFECTIVE [None]
  - JOINT SWELLING [None]
  - PAIN [None]
